FAERS Safety Report 5314462-9 (Version None)
Quarter: 2007Q2

REPORT INFORMATION
  Report Type: 
  Country: None (occurrence: None)
  Receive Date: 20070502
  Receipt Date: 20070426
  Transmission Date: 20071010
  Serious: Yes (Hospitalization)
  Sender: FDA-Public Use
  Company Number: JP-BAYER-200712396GDS

PATIENT
  Age: 66 Year
  Sex: Male

DRUGS (2)
  1. ASPIRIN [Suspect]
     Indication: ANTIPLATELET THERAPY
     Route: 065
  2. ASPIRIN [Suspect]
     Route: 065

REACTIONS (4)
  - HAEMATEMESIS [None]
  - MALLORY-WEISS SYNDROME [None]
  - MYOCARDIAL INFARCTION [None]
  - VOMITING [None]
